FAERS Safety Report 24863386 (Version 2)
Quarter: 2025Q1

REPORT INFORMATION
  Report Type: Spontaneous
  Country: US (occurrence: US)
  Receive Date: 20250120
  Receipt Date: 20250310
  Transmission Date: 20250408
  Serious: No
  Sender: SANOFI AVENTIS
  Company Number: US-SA-2025SA016444

PATIENT
  Sex: Male
  Weight: 79.09 kg

DRUGS (6)
  1. DUPIXENT [Suspect]
     Active Substance: DUPILUMAB
     Indication: Eosinophilic oesophagitis
     Dosage: 300 MG, QW
     Route: 058
  2. LEVOTHYROXINE [Concomitant]
     Active Substance: LEVOTHYROXINE
  3. PREDNISONE [Concomitant]
     Active Substance: PREDNISONE
  4. EUCRISA [Concomitant]
     Active Substance: CRISABOROLE
  5. TRIAMCINOLONE [Concomitant]
     Active Substance: TRIAMCINOLONE
  6. BUPROPION [Concomitant]
     Active Substance: BUPROPION

REACTIONS (2)
  - Injection site pain [Unknown]
  - Dysphagia [Unknown]
